FAERS Safety Report 4614008-4 (Version None)
Quarter: 2005Q1

REPORT INFORMATION
  Report Type: 
  Country: None (occurrence: None)
  Receive Date: 20050321
  Receipt Date: 20050310
  Transmission Date: 20050727
  Serious: Yes (Death)
  Sender: FDA-Public Use
  Company Number: FI-ROCHE-397943

PATIENT
  Age: 52 Year
  Sex: Female

DRUGS (3)
  1. CAPECITABINE [Suspect]
     Indication: BREAST CANCER
     Dosage: SECOND CYCLE.
     Route: 048
     Dates: start: 20050215, end: 20050225
  2. DOCETAXEL [Suspect]
     Indication: BREAST CANCER
     Dosage: SECOND CYCLE.
     Route: 042
     Dates: start: 20050215
  3. DEXAMETHASONE [Suspect]
     Route: 065
     Dates: start: 20050214, end: 20050217

REACTIONS (2)
  - COMPLETED SUICIDE [None]
  - FALL [None]
